FAERS Safety Report 9237588 (Version 2)
Quarter: 2013Q4

REPORT INFORMATION
  Report Type: Report from Study
  Country: NZ (occurrence: NZ)
  Receive Date: 20130418
  Receipt Date: 20131206
  Transmission Date: 20140711
  Serious: Yes (Other)
  Sender: FDA-Public Use
  Company Number: NZ-009507513-1304NZL007808

PATIENT
  Age: 73 Year
  Sex: Male
  Weight: 98 kg

DRUGS (10)
  1. BLINDED EZETIMIBE (+) SIMVASTATIN [Suspect]
     Indication: ACUTE CORONARY SYNDROME
     Dosage: UNK
     Route: 048
     Dates: start: 20090813
  2. BLINDED THERAPY [Suspect]
     Indication: ACUTE CORONARY SYNDROME
     Dosage: UNK
     Route: 048
     Dates: start: 20090813
  3. K-DUR [Suspect]
     Dosage: 600 MG DAILY
     Route: 048
     Dates: start: 20090201
  4. METFORMIN [Concomitant]
     Dosage: 500 MG DAILY
     Route: 048
     Dates: start: 20110228
  5. FUROSEMIDE [Concomitant]
     Dosage: 40 MG DAILY
     Route: 048
     Dates: start: 20090202
  6. ASPIRIN [Concomitant]
     Dosage: 100 MG DAILY
     Route: 048
     Dates: start: 20100801
  7. ATORVASTATIN [Concomitant]
     Dosage: 40 MG DAILY
     Route: 048
     Dates: start: 20110201
  8. OMPERAZOL DURA [Concomitant]
     Dosage: 40 MG DAILY
     Route: 048
     Dates: start: 20090101
  9. CANDESARTAN [Concomitant]
     Dosage: 4 MG DAILY
     Route: 048
     Dates: start: 20090201, end: 20130228
  10. METOPROLOL [Concomitant]
     Dosage: 95 MG DAILY
     Route: 048
     Dates: start: 20090201

REACTIONS (1)
  - Basal cell carcinoma [Recovered/Resolved]
